FAERS Safety Report 7499569-2 (Version None)
Quarter: 2011Q2

REPORT INFORMATION
  Report Type: 
  Country: None (occurrence: None)
  Receive Date: 20110524
  Receipt Date: 20110523
  Transmission Date: 20111010
  Serious: Yes (Hospitalization)
  Sender: FDA-Public Use
  Company Number: PHHO2002GB06629

PATIENT
  Sex: Female
  Weight: 79.4 kg

DRUGS (4)
  1. VIOXX [Concomitant]
     Indication: RHEUMATOID ARTHRITIS
     Dosage: 125 MG, BID
     Route: 048
     Dates: start: 20020607, end: 20020904
  2. METHOTREXATE [Suspect]
     Indication: RHEUMATOID ARTHRITIS
     Dosage: CODE NOT BROKEN
     Route: 048
     Dates: start: 20020828, end: 20020904
  3. CYCLOSPORINE [Suspect]
  4. PREDNISOLONE [Suspect]

REACTIONS (6)
  - THIRST [None]
  - DYSPNOEA [None]
  - ABDOMINAL DISTENSION [None]
  - ABDOMINAL DISCOMFORT [None]
  - DIVERTICULUM [None]
  - APPENDICITIS [None]
